FAERS Safety Report 7580750-9 (Version None)
Quarter: 2011Q2

REPORT INFORMATION
  Report Type: 
  Country: None (occurrence: None)
  Receive Date: 20110629
  Receipt Date: 20110623
  Transmission Date: 20111010
  Serious: Yes (Other)
  Sender: FDA-Public Use
  Company Number: DE-PFIZER INC-2011092426

PATIENT
  Age: 46 Year
  Sex: Male

DRUGS (3)
  1. ZOLOFT [Suspect]
     Dosage: 100 MG, DAILY
  2. CANDESARTAN CILEXETIL [Concomitant]
     Indication: ESSENTIAL HYPERTENSION
     Dosage: UNK
     Route: 048
     Dates: start: 19980101
  3. ZOLOFT [Suspect]
     Indication: DEPRESSION
     Dosage: 50 - 100  MG, DAILY
     Route: 048
     Dates: start: 19980901

REACTIONS (2)
  - LICHEN SCLEROSUS [None]
  - SYSTEMIC MYCOSIS [None]
